FAERS Safety Report 8371433-6 (Version None)
Quarter: 2012Q2

REPORT INFORMATION
  Report Type: 
  Country: None (occurrence: None)
  Receive Date: 20120518
  Receipt Date: 20120510
  Transmission Date: 20120825
  Serious: Yes (Hospitalization)
  Sender: FDA-Public Use
  Company Number: TR-GILEAD-2012-0054867

PATIENT
  Sex: Male

DRUGS (3)
  1. TENOFOVIR DISOPROXIL FUMARATE [Suspect]
     Dosage: 300 MG, QD
     Route: 048
     Dates: start: 20090716, end: 20120225
  2. TENOFOVIR DISOPROXIL FUMARATE [Suspect]
     Dosage: 300 MG, QD
     Route: 048
     Dates: start: 20120228
  3. TENOFOVIR DISOPROXIL FUMARATE [Suspect]
     Indication: HEPATITIS B
     Dosage: 300 MG, QD
     Route: 048

REACTIONS (1)
  - TRAUMATIC FRACTURE [None]
